FAERS Safety Report 7714782-4 (Version None)
Quarter: 2011Q3

REPORT INFORMATION
  Report Type: 
  Country: None (occurrence: None)
  Receive Date: 20110822
  Receipt Date: 20110804
  Transmission Date: 20111222
  Serious: Yes (Death, Other)
  Sender: FDA-Public Use
  Company Number: 2011MA011475

PATIENT
  Age: 45 Year

DRUGS (2)
  1. CARBAMAZEPINE [Suspect]
     Indication: OVERDOSE
     Dosage: X1
  2. METHADONE HCL [Suspect]
     Indication: OVERDOSE
     Dosage: 1.0 MG/L;X1

REACTIONS (7)
  - TOXICITY TO VARIOUS AGENTS [None]
  - STUPOR [None]
  - RESPIRATORY DEPRESSION [None]
  - SNORING [None]
  - DEPRESSED LEVEL OF CONSCIOUSNESS [None]
  - OVERDOSE [None]
  - PULMONARY OEDEMA [None]
